FAERS Safety Report 5849534-3 (Version None)
Quarter: 2008Q3

REPORT INFORMATION
  Report Type: 
  Country: None (occurrence: None)
  Receive Date: 20080819
  Receipt Date: 20080814
  Transmission Date: 20090109
  Serious: Yes (Hospitalization)
  Sender: FDA-Public Use
  Company Number: B0532808A

PATIENT
  Age: 81 Year
  Sex: Female

DRUGS (6)
  1. ARIXTRA [Suspect]
     Indication: DRUG USE FOR UNKNOWN INDICATION
     Dosage: 2.5MG PER DAY
     Route: 058
     Dates: start: 20080607, end: 20080610
  2. ATENOLOL [Suspect]
     Indication: DRUG USE FOR UNKNOWN INDICATION
     Dosage: 75MG PER DAY
     Route: 048
  3. PYOSTACINE [Suspect]
     Indication: DRUG USE FOR UNKNOWN INDICATION
     Dosage: 3G PER DAY
     Route: 065
     Dates: start: 20080607, end: 20080610
  4. AMLOR [Concomitant]
     Dosage: 5MG PER DAY
     Route: 048
  5. LASILIX RETARD [Concomitant]
     Dosage: 60MG TWICE PER DAY
     Route: 048
  6. DAFALGAN [Concomitant]
     Dosage: 4G PER DAY
     Route: 065
     Dates: end: 20080610

REACTIONS (5)
  - ANAEMIA [None]
  - GASTRIC ULCER HAEMORRHAGE [None]
  - HAEMATEMESIS [None]
  - HYPOTENSION [None]
  - MELAENA [None]
